FAERS Safety Report 4281217-6 (Version None)
Quarter: 2004Q1

REPORT INFORMATION
  Report Type: 
  Country: None (occurrence: None)
  Receive Date: 20040113
  Receipt Date: 20031112
  Transmission Date: 20041129
  Serious: No
  Sender: FDA-Public Use
  Company Number: A03200302747

PATIENT

DRUGS (1)
  1. UROXATRAL [Suspect]
     Dosage: 10 MG QD - ORAL
     Route: 048

REACTIONS (3)
  - BACK PAIN [None]
  - MYALGIA [None]
  - PAIN IN EXTREMITY [None]
